FAERS Safety Report 5556964-6 (Version None)
Quarter: 2007Q4

REPORT INFORMATION
  Report Type: 
  Country: None (occurrence: None)
  Receive Date: 20071214
  Receipt Date: 20070920
  Transmission Date: 20080405
  Serious: No
  Sender: FDA-Public Use
  Company Number: US-AMGEN-KDL244260

PATIENT
  Age: 51 Year
  Sex: Male

DRUGS (1)
  1. ENBREL [Suspect]
     Indication: DRUG USE FOR UNKNOWN INDICATION
     Dates: start: 20050101, end: 20060901

REACTIONS (3)
  - GASTROINTESTINAL INFECTION [None]
  - INFECTION IN AN IMMUNOCOMPROMISED HOST [None]
  - VIRAL INFECTION [None]
